FAERS Safety Report 5666723-1 (Version None)
Quarter: 2008Q1

REPORT INFORMATION
  Report Type: 
  Country: None (occurrence: None)
  Receive Date: 20080315
  Receipt Date: 20071231
  Transmission Date: 20080703
  Serious: No
  Sender: FDA-Public Use
  Company Number: US-ABBOTT-08P-163-0432024-00

PATIENT
  Sex: Male
  Weight: 56.75 kg

DRUGS (2)
  1. HUMIRA [Suspect]
     Indication: ANKYLOSING SPONDYLITIS
     Route: 058
     Dates: start: 20071213
  2. OXYCODONE HCL [Concomitant]
     Indication: PAIN

REACTIONS (4)
  - DYSPNOEA [None]
  - FALL [None]
  - PALPITATIONS [None]
  - SENSATION OF HEAVINESS [None]
